FAERS Safety Report 6347643-6 (Version None)
Quarter: 2009Q3

REPORT INFORMATION
  Report Type: 
  Country: None (occurrence: None)
  Receive Date: 20090910
  Receipt Date: 20090831
  Transmission Date: 20100115
  Serious: Yes (Hospitalization)
  Sender: FDA-Public Use
  Company Number: US-JNJFOC-20090803154

PATIENT
  Sex: Male
  Weight: 88 kg

DRUGS (8)
  1. REMICADE [Suspect]
     Dosage: 2ND INFUSION 6 WEEKS AGO
     Route: 042
     Dates: start: 20090601, end: 20090601
  2. REMICADE [Suspect]
     Indication: CROHN'S DISEASE
     Dosage: 1ST INFUSION 8 WEEKS AGO
     Route: 042
     Dates: start: 20090601, end: 20090601
  3. PREDNISONE TAB [Concomitant]
     Indication: CROHN'S DISEASE
  4. PENTASA [Concomitant]
     Indication: CROHN'S DISEASE
  5. ALBUTEROL [Concomitant]
     Indication: ASTHMA
     Route: 055
  6. SYMBICORT [Concomitant]
     Indication: ASTHMA
  7. SINGULAIR [Concomitant]
     Indication: ASTHMA
  8. TESSALON [Concomitant]
     Indication: COUGH

REACTIONS (2)
  - ASTHMA [None]
  - CROHN'S DISEASE [None]
